FAERS Safety Report 4315735-9 (Version None)
Quarter: 2004Q1

REPORT INFORMATION
  Report Type: 
  Country: None (occurrence: None)
  Receive Date: 20040310
  Receipt Date: 20040225
  Transmission Date: 20041129
  Serious: Yes (Hospitalization, Other)
  Sender: FDA-Public Use
  Company Number: 2004013502

PATIENT
  Sex: Female

DRUGS (1)
  1. NEURONTIN [Suspect]
     Indication: MUSCLE CRAMP

REACTIONS (4)
  - DRUG INEFFECTIVE [None]
  - GASTRIC OPERATION [None]
  - INTESTINAL OPERATION [None]
  - SUICIDE ATTEMPT [None]
